FAERS Safety Report 7241502-2 (Version None)
Quarter: 2011Q1

REPORT INFORMATION
  Report Type: 
  Country: None (occurrence: None)
  Receive Date: 20110124
  Receipt Date: 20110112
  Transmission Date: 20110831
  Serious: Yes (Hospitalization)
  Sender: FDA-Public Use
  Company Number: JP-AMGEN-JPNCT2010001679

PATIENT
  Age: 60 Year
  Sex: Male
  Weight: 81 kg

DRUGS (15)
  1. ZOMETA [Concomitant]
     Route: 042
     Dates: start: 20100902, end: 20101028
  2. CARDENALIN [Concomitant]
     Route: 048
  3. NITOROL R [Concomitant]
     Indication: ANGINA PECTORIS
     Dosage: 20 MG, BID
     Route: 048
  4. CORTICOSTEROIDS [Concomitant]
     Indication: PROPHYLAXIS
     Route: 065
  5. KADIAN [Concomitant]
     Route: 048
  6. KADIAN [Concomitant]
     Route: 048
  7. PANITUMUMAB [Suspect]
     Indication: COLORECTAL CANCER
     Dosage: 6 MG/KG, Q2WK
     Route: 041
     Dates: start: 20100819, end: 20101028
  8. KADIAN [Concomitant]
     Indication: CANCER PAIN
     Dosage: 20 MG, QD
     Route: 048
  9. CARDENALIN [Concomitant]
     Indication: HYPERTENSION
     Dosage: 2 MG, BID
     Route: 048
  10. TSUMURA GOSHAJINKIGAN [Concomitant]
     Indication: HYPOAESTHESIA
     Dosage: 2.5 G, TID
     Route: 048
  11. TSUMURA GOSHAJINKIGAN [Concomitant]
     Route: 048
  12. LANDEL [Concomitant]
     Route: 048
  13. ANTIHISTAMINES [Concomitant]
     Indication: PROPHYLAXIS
     Route: 065
  14. NITOROL R [Concomitant]
     Route: 048
  15. LANDEL [Concomitant]
     Indication: HYPERTENSION
     Dosage: 40 MG, QD
     Route: 048

REACTIONS (3)
  - CEREBRAL INFARCTION [None]
  - DERMATITIS ACNEIFORM [None]
  - DRY SKIN [None]
